FAERS Safety Report 24972809 (Version 2)
Quarter: 2025Q1

REPORT INFORMATION
  Report Type: Spontaneous
  Country: US (occurrence: US)
  Receive Date: 20250215
  Receipt Date: 20250325
  Transmission Date: 20250409
  Serious: No
  Sender: TEVA
  Company Number: US-TEVA-VS-3291922

PATIENT
  Age: 55 Year
  Sex: Female

DRUGS (1)
  1. TESTOSTERONE [Suspect]
     Active Substance: TESTOSTERONE
     Indication: Hormone replacement therapy
     Route: 061
     Dates: start: 20241219, end: 20241226

REACTIONS (6)
  - Headache [Unknown]
  - Feeling abnormal [Unknown]
  - Nausea [Unknown]
  - Product odour abnormal [Unknown]
  - Product use issue [Unknown]
  - Product leakage [Unknown]

NARRATIVE: CASE EVENT DATE: 20241219
